FAERS Safety Report 20968335 (Version 1)
Quarter: 2022Q2

REPORT INFORMATION
  Report Type: Spontaneous
  Country: US (occurrence: US)
  Receive Date: 20220616
  Receipt Date: 20220616
  Transmission Date: 20220721
  Serious: Yes (Other)
  Sender: FDA-Public Use
  Company Number: US-PFIZER INC-202200816253

PATIENT
  Age: 35 Year
  Sex: Female

DRUGS (2)
  1. METHOTREXATE SODIUM [Suspect]
     Active Substance: METHOTREXATE SODIUM
     Indication: Surgery
     Dosage: 50 MG/M2(FIRST DOSE)
     Route: 030
  2. METHOTREXATE SODIUM [Suspect]
     Active Substance: METHOTREXATE SODIUM
     Dosage: SECOND DOSE
     Route: 030

REACTIONS (3)
  - Ectopic pregnancy [Unknown]
  - Therapeutic product effect incomplete [Unknown]
  - Abdominal pain [Unknown]
